FAERS Safety Report 5015968-2 (Version None)
Quarter: 2006Q2

REPORT INFORMATION
  Report Type: 
  Country: None (occurrence: None)
  Receive Date: 20060531
  Receipt Date: 20060531
  Transmission Date: 20061013
  Serious: Yes (Hospitalization)
  Sender: FDA-Public Use
  Company Number: None

PATIENT
  Age: 54 Year
  Sex: Male
  Weight: 95 kg

DRUGS (22)
  1. VIAGRA [Suspect]
     Indication: ERECTILE DYSFUNCTION
     Dosage: 100MG  PRN  PO
     Route: 048
     Dates: start: 20060210, end: 20060213
  2. ABILIFY [Concomitant]
  3. CENTRUM WITH LYCOPENE [Concomitant]
  4. INDOMETHACIN [Concomitant]
  5. ENZYTE [Concomitant]
  6. CIPRO [Concomitant]
  7. TRAZODONE HCL [Concomitant]
  8. ALTOVIS [Concomitant]
  9. QUININE SULFATE [Concomitant]
  10. FAMOTIDINE [Concomitant]
  11. PRILOSEC [Concomitant]
  12. LORAZEPAM [Concomitant]
  13. LOPERIMIDE [Concomitant]
  14. FOCUS FACTOR [Concomitant]
  15. ROBITUSSIN DM [Concomitant]
  16. PSEUDOEPHEDRINE HCL [Concomitant]
  17. TRIAMCINOLONE [Concomitant]
  18. DEPAKOTE ER [Concomitant]
  19. LEXAPRO [Concomitant]
  20. VIAGRA [Concomitant]
  21. VICODIN [Concomitant]
  22. RITALIN [Concomitant]

REACTIONS (12)
  - BLINDNESS [None]
  - COUGH [None]
  - DIZZINESS [None]
  - DRY THROAT [None]
  - HEADACHE [None]
  - LEUKOCYTE ANTIGEN B-27 POSITIVE [None]
  - MYALGIA [None]
  - NASAL CONGESTION [None]
  - NAUSEA [None]
  - OPTIC ISCHAEMIC NEUROPATHY [None]
  - RHINORRHOEA [None]
  - VISION BLURRED [None]
